FAERS Safety Report 24303954 (Version 1)
Quarter: 2024Q3

REPORT INFORMATION
  Report Type: Spontaneous
  Country: MA (occurrence: MA)
  Receive Date: 20240910
  Receipt Date: 20240910
  Transmission Date: 20241017
  Serious: Yes (Death, Life-Threatening, Hospitalization)
  Sender: Steriscience PTE
  Company Number: MA-STERISCIENCE B.V.-2024-ST-001330

PATIENT

DRUGS (3)
  1. MEROPENEM [Suspect]
     Active Substance: MEROPENEM
     Indication: Endocarditis
     Route: 065
  2. TIGECYCLINE [Suspect]
     Active Substance: TIGECYCLINE
     Indication: Endocarditis
     Route: 065
  3. COLISTIN [Suspect]
     Active Substance: COLISTIN
     Indication: Endocarditis
     Route: 065

REACTIONS (1)
  - Drug ineffective [Fatal]
